FAERS Safety Report 4878155-4 (Version None)
Quarter: 2005Q4

REPORT INFORMATION
  Report Type: 
  Country: None (occurrence: None)
  Receive Date: 20051212
  Receipt Date: 20051103
  Transmission Date: 20060501
  Serious: Yes (Hospitalization)
  Sender: FDA-Public Use
  Company Number: 2005-02323

PATIENT
  Age: 48 Year
  Sex: Male

DRUGS (3)
  1. VELCADE [Suspect]
     Indication: MULTIPLE MYELOMA
     Route: 065
     Dates: start: 20050501, end: 20050801
  2. ADRIAMYCIN PFS [Concomitant]
  3. DEXAMETHASONE TAB [Concomitant]

REACTIONS (2)
  - DEHYDRATION [None]
  - ORTHOSTATIC HYPOTENSION [None]
